FAERS Safety Report 24138615 (Version 1)
Quarter: 2024Q3

REPORT INFORMATION
  Report Type: Spontaneous
  Country: US (occurrence: US)
  Receive Date: 20240725
  Receipt Date: 20240725
  Transmission Date: 20241016
  Serious: Yes (Hospitalization)
  Sender: ALKERMES
  Company Number: US-ALKERMES INC.-ALK-2024-001893

PATIENT
  Age: 61 Year
  Sex: Male

DRUGS (3)
  1. VIVITROL [Suspect]
     Active Substance: NALTREXONE
     Indication: Product used for unknown indication
     Dosage: DAY 0 380 MILLIGRAM, QMO
     Route: 030
  2. SUBLOCADE [Suspect]
     Active Substance: BUPRENORPHINE
     Indication: Drug use disorder
     Dosage: RESTARTED AFTER 4 MONTHS
  3. SUBLOCADE [Suspect]
     Active Substance: BUPRENORPHINE
     Dosage: THREE YEARS AT 300 MG
     Route: 065

REACTIONS (4)
  - Encephalopathy [Recovered/Resolved]
  - Withdrawal syndrome [Recovered/Resolved]
  - Wrong product administered [Recovered/Resolved]
  - Injection site mass [Unknown]
